FAERS Safety Report 8087266-4 (Version None)
Quarter: 2012Q1

REPORT INFORMATION
  Report Type: 
  Country: None (occurrence: None)
  Receive Date: 20120128
  Receipt Date: 20110516
  Transmission Date: 20120608
  Serious: No
  Sender: FDA-Public Use
  Company Number: US-ABBOTT-11P-163-0725816-00

PATIENT
  Age: 46 Year
  Sex: Female

DRUGS (7)
  1. TOPAMAX [Concomitant]
     Indication: MIGRAINE
  2. LANTUS [Concomitant]
     Indication: DIABETES MELLITUS
  3. ADDERALL 5 [Concomitant]
     Indication: FATIGUE
     Dosage: 15MG DAILY
  4. DIOVAN [Concomitant]
     Indication: HYPERTENSION
     Dosage: 150MG DAILY
  5. WELLBUTRIN [Concomitant]
     Indication: DEPRESSION
  6. CYMBALTA [Concomitant]
     Indication: DEPRESSION
  7. HUMIRA [Suspect]
     Indication: RHEUMATOID ARTHRITIS
     Dates: start: 20110403, end: 20110501

REACTIONS (3)
  - FATIGUE [None]
  - RASH PRURITIC [None]
  - RASH PAPULAR [None]
